FAERS Safety Report 5490161-8 (Version None)
Quarter: 2007Q4

REPORT INFORMATION
  Report Type: 
  Country: None (occurrence: None)
  Receive Date: 20071018
  Receipt Date: 20071011
  Transmission Date: 20080405
  Serious: Yes (Hospitalization)
  Sender: FDA-Public Use
  Company Number: SE-BOEHRINGER INGELHEIM PHARMACEUTICALS, INC.-2007-SW-00375SW

PATIENT
  Sex: Female

DRUGS (8)
  1. COMBIVENT [Suspect]
     Indication: ASTHMA
     Dosage: IPRATROPIUM 0.5 MG + SALBUTAMOL 2.5 MG X 2-3 DAILY
     Route: 055
     Dates: start: 20030101
  2. COMBIVENT [Suspect]
     Dosage: IPRATROPIUM 2 MG + SALBUTAMOL 10 MG DAILY
     Route: 055
     Dates: start: 20070926
  3. AMILORID [Concomitant]
     Indication: HYPOKALAEMIA
     Dates: start: 19910101
  4. KALIUM RETARD [Concomitant]
     Indication: HYPOKALAEMIA
     Dates: start: 19910101
  5. EMGESAN [Concomitant]
     Indication: BLOOD MAGNESIUM DECREASED
     Dates: start: 20020101
  6. PULMICORT [Concomitant]
     Indication: ASTHMA
  7. OXIS TURBOHALER [Concomitant]
  8. ACETYLCYSTEINE [Concomitant]

REACTIONS (1)
  - HYPOKALAEMIA [None]
